FAERS Safety Report 6482626-7 (Version None)
Quarter: 2009Q4

REPORT INFORMATION
  Report Type: 
  Country: None (occurrence: None)
  Receive Date: 20091209
  Receipt Date: 20091201
  Transmission Date: 20100525
  Serious: Yes (Hospitalization)
  Sender: FDA-Public Use
  Company Number: US-BIOGENIDEC-174760

PATIENT
  Age: 33 Year
  Sex: Female
  Weight: 88 kg

DRUGS (4)
  1. AVONEX [Suspect]
     Indication: MULTIPLE SCLEROSIS
     Route: 030
     Dates: start: 19990101, end: 20010101
  2. AVONEX [Suspect]
     Route: 030
     Dates: start: 20030623
  3. ORAL CONTRACEPTIVE PILLS [Concomitant]
  4. BEE STING INJECTIONS [Concomitant]

REACTIONS (6)
  - ANKLE FRACTURE [None]
  - ASTHENIA [None]
  - FALL [None]
  - INFLUENZA LIKE ILLNESS [None]
  - MULTIPLE SCLEROSIS RELAPSE [None]
  - THROMBOSIS [None]
